FAERS Safety Report 8233328-8 (Version None)
Quarter: 2012Q1

REPORT INFORMATION
  Report Type: 
  Country: None (occurrence: None)
  Receive Date: 20120326
  Receipt Date: 20120321
  Transmission Date: 20120608
  Serious: Yes (Hospitalization, Other)
  Sender: FDA-Public Use
  Company Number: US-BAYER-2012-027963

PATIENT
  Sex: Female

DRUGS (2)
  1. YASMIN [Suspect]
     Dosage: UNK
     Route: 048
     Dates: start: 20030101
  2. YAZ [Suspect]
     Dosage: UNK
     Route: 048
     Dates: start: 20030101

REACTIONS (5)
  - EMOTIONAL DISTRESS [None]
  - GALLBLADDER DISORDER [None]
  - THROMBOSIS [None]
  - INJURY [None]
  - PAIN [None]
